FAERS Safety Report 4616766-1 (Version None)
Quarter: 2005Q2

REPORT INFORMATION
  Report Type: 
  Country: None (occurrence: None)
  Receive Date: 20050311
  Receipt Date: 20041222
  Transmission Date: 20051028
  Serious: Yes (Other)
  Sender: FDA-Public Use
  Company Number: 2004-00965

PATIENT
  Age: 72 Year
  Sex: Male

DRUGS (3)
  1. VELCADE [Suspect]
     Indication: MULTIPLE MYELOMA
     Dosage: 2.40 MG, 2/WEEK, IV BOLUS
     Route: 040
  2. DECADRON [Suspect]
     Indication: MULTIPLE MYELOMA
  3. PERCOCET [Concomitant]

REACTIONS (2)
  - HERPES ZOSTER [None]
  - PAIN [None]
